FAERS Safety Report 8207678-5 (Version None)
Quarter: 2012Q1

REPORT INFORMATION
  Report Type: 
  Country: None (occurrence: None)
  Receive Date: 20120314
  Receipt Date: 20120312
  Transmission Date: 20120608
  Serious: Yes (Other)
  Sender: FDA-Public Use
  Company Number: US-PFIZER INC-2012064970

PATIENT
  Sex: Male
  Weight: 86 kg

DRUGS (4)
  1. MORPHINE [Concomitant]
     Dosage: UNK
  2. LYRICA [Suspect]
     Dosage: 25 MG, 3X/DAY
     Route: 048
     Dates: start: 20120310
  3. OXYCODONE [Concomitant]
     Dosage: UNK
  4. LYRICA [Suspect]
     Indication: PAIN
     Dosage: 100 MG, 3X/DAY
     Route: 048
     Dates: start: 20120307, end: 20120309

REACTIONS (3)
  - TREMOR [None]
  - SOMNOLENCE [None]
  - OEDEMA PERIPHERAL [None]
